FAERS Safety Report 5860007-4 (Version None)
Quarter: 2008Q3

REPORT INFORMATION
  Report Type: 
  Country: None (occurrence: None)
  Receive Date: 20080827
  Receipt Date: 20080818
  Transmission Date: 20090109
  Serious: Yes (Other)
  Sender: FDA-Public Use
  Company Number: CA-JNJFOC-20080804383

PATIENT
  Sex: Female

DRUGS (4)
  1. REMICADE [Suspect]
     Dosage: 3RD DOSE
     Route: 042
  2. REMICADE [Suspect]
     Indication: DRUG USE FOR UNKNOWN INDICATION
     Dosage: TWO LOADING DOSES, UNSPECIFIED DATES
     Route: 042
  3. BENADRYL [Suspect]
     Indication: PREMEDICATION
     Route: 042
  4. SODIUM CHLORIDE [Concomitant]
     Indication: PREMEDICATION

REACTIONS (5)
  - DISTURBANCE IN ATTENTION [None]
  - DYSPNOEA [None]
  - INFUSION RELATED REACTION [None]
  - LYMPHADENOPATHY [None]
  - SENSORY DISTURBANCE [None]
